FAERS Safety Report 23538999 (Version 10)
Quarter: 2024Q2

REPORT INFORMATION
  Report Type: Spontaneous
  Country: KR (occurrence: KR)
  Receive Date: 20240219
  Receipt Date: 20240403
  Transmission Date: 20240716
  Serious: No
  Sender: FDA-Public Use
  Company Number: KR-PFIZER INC-PV202400013017

PATIENT
  Age: 10 Year
  Sex: Male

DRUGS (1)
  1. GENOTROPIN [Suspect]
     Active Substance: SOMATROPIN
     Indication: Short stature
     Dosage: 1.0 MG, 6 TIMES PER WEEK
     Dates: start: 202306

REACTIONS (3)
  - Nasopharyngitis [Unknown]
  - Drug dose omission by device [Unknown]
  - Product contamination physical [Unknown]

NARRATIVE: CASE EVENT DATE: 20240128
